FAERS Safety Report 15712501 (Version 1)
Quarter: 2018Q4

REPORT INFORMATION
  Report Type: Spontaneous
  Country: GR (occurrence: GR)
  Receive Date: 20181212
  Receipt Date: 20181212
  Transmission Date: 20190205
  Serious: Yes (Other)
  Sender: FDA-Public Use
  Company Number: GR-TEVA-2018-GR-985831

PATIENT
  Age: 66 Year
  Sex: Female

DRUGS (15)
  1. TDM1 [Suspect]
     Active Substance: ADO-TRASTUZUMAB EMTANSINE
     Indication: BREAST CANCER FEMALE
     Dates: start: 201301
  2. ZOLEDRONIC ACID [Suspect]
     Active Substance: ZOLEDRONIC ACID
     Indication: BREAST CANCER FEMALE
     Route: 065
     Dates: start: 2008, end: 201010
  3. CAPECITABINE. [Concomitant]
     Active Substance: CAPECITABINE
     Indication: METASTASES TO LYMPH NODES
  4. LAPATINIB [Concomitant]
     Active Substance: LAPATINIB
     Indication: METASTASES TO LYMPH NODES
  5. LIPOSOMAL-DOXORUBICIN [Concomitant]
     Indication: METASTASES TO BONE
  6. TRASTUZUMAB. [Suspect]
     Active Substance: TRASTUZUMAB
     Indication: METASTASES TO BONE
  7. LAPATINIB [Concomitant]
     Active Substance: LAPATINIB
     Indication: BREAST CANCER FEMALE
     Route: 065
  8. LAPATINIB [Concomitant]
     Active Substance: LAPATINIB
     Indication: METASTASES TO BONE
  9. TRASTUZUMAB. [Suspect]
     Active Substance: TRASTUZUMAB
     Indication: BREAST CANCER FEMALE
     Dosage: TRASTUZUMAB WAS ADMINISTERED AS A PART OF VARIOUS CHEMOTHERAPEUTIC REGIMENS
     Route: 065
     Dates: start: 2008
  10. CAPECITABINE. [Concomitant]
     Active Substance: CAPECITABINE
     Indication: METASTASES TO BONE
  11. ZOLEDRONIC ACID [Suspect]
     Active Substance: ZOLEDRONIC ACID
     Indication: METASTASES TO BONE
     Dosage: MAINTAINANCE  THERAPY WITH LAPATINIB AND ZOLEDRONATE
     Route: 065
  12. ZOLEDRONIC ACID [Suspect]
     Active Substance: ZOLEDRONIC ACID
     Indication: METASTASES TO LYMPH NODES
     Route: 065
     Dates: start: 2012
  13. TDM1 [Suspect]
     Active Substance: ADO-TRASTUZUMAB EMTANSINE
     Indication: METASTASES TO LYMPH NODES
  14. CAPECITABINE. [Concomitant]
     Active Substance: CAPECITABINE
     Indication: BREAST CANCER FEMALE
     Route: 065
  15. LIPOSOMAL-DOXORUBICIN [Concomitant]
     Indication: BREAST CANCER FEMALE
     Route: 065

REACTIONS (2)
  - Atypical femur fracture [Recovering/Resolving]
  - Osteonecrosis of jaw [Recovered/Resolved]

NARRATIVE: CASE EVENT DATE: 201412
